FAERS Safety Report 7524400-6 (Version None)
Quarter: 2011Q2

REPORT INFORMATION
  Report Type: 
  Country: None (occurrence: None)
  Receive Date: 20110525
  Receipt Date: 20110512
  Transmission Date: 20111010
  Serious: Yes (Hospitalization)
  Sender: FDA-Public Use
  Company Number: JP-2011-10545

PATIENT
  Age: 82 Year
  Sex: Male
  Weight: 33.5 kg

DRUGS (11)
  1. HANP (CARPERITIDE) [Concomitant]
  2. LASIX [Concomitant]
  3. SAMSCA [Suspect]
     Indication: CARDIAC FAILURE CONGESTIVE
     Dosage: 7.5 MG MILLIGRAM(S), QOD, ORAL
     Route: 048
     Dates: start: 20110302, end: 20110307
  4. LASIX [Concomitant]
  5. SELARA (EPLERENONE) [Concomitant]
  6. WARFARIN (WARFARIN POTASSIUM) [Concomitant]
  7. PIMOBENDAN (PIMOBENDAN) [Concomitant]
  8. ASPIRIN [Concomitant]
  9. DIART (AZOSEMIDE) [Concomitant]
  10. FLUITRAN (TRICHLOMETHIAZIDE) [Concomitant]
  11. LANIRAPID (METILDIGOXIN) [Concomitant]

REACTIONS (2)
  - DEHYDRATION [None]
  - HYPONATRAEMIA [None]
